FAERS Safety Report 13298962 (Version 1)
Quarter: 2017Q1

REPORT INFORMATION
  Report Type: Spontaneous
  Country: DE (occurrence: DE)
  Receive Date: 20170306
  Receipt Date: 20170306
  Transmission Date: 20170428
  Serious: Yes (Hospitalization)
  Sender: FDA-Public Use
  Company Number: DE-TEVA-743323GER

PATIENT
  Sex: Female

DRUGS (5)
  1. RISPERIDON [Suspect]
     Active Substance: RISPERIDONE
     Dates: start: 201002, end: 201005
  2. CIPRALEX [Interacting]
     Active Substance: ESCITALOPRAM OXALATE
     Dates: start: 201005, end: 201006
  3. RISPERIDON [Interacting]
     Active Substance: RISPERIDONE
     Dates: start: 201005, end: 201006
  4. ARIPIPRAZOL [Concomitant]
     Active Substance: ARIPIPRAZOLE
     Dates: start: 201006
  5. CIPRALEX [Interacting]
     Active Substance: ESCITALOPRAM OXALATE
     Dates: start: 201006

REACTIONS (2)
  - Galactorrhoea [Recovered/Resolved]
  - Drug interaction [Unknown]
